FAERS Safety Report 6413310-3 (Version None)
Quarter: 2009Q4

REPORT INFORMATION
  Report Type: 
  Country: None (occurrence: None)
  Receive Date: 20091026
  Receipt Date: 20091015
  Transmission Date: 20100525
  Serious: Yes (Other)
  Sender: FDA-Public Use
  Company Number: US-JNJFOC-20091006043

PATIENT
  Sex: Male
  Weight: 89.81 kg

DRUGS (2)
  1. REMICADE [Suspect]
     Route: 042
     Dates: start: 20080201, end: 20090826
  2. REMICADE [Suspect]
     Indication: RHEUMATOID ARTHRITIS
     Route: 042
     Dates: start: 20080201, end: 20090826

REACTIONS (1)
  - ARTHROPATHY [None]
